FAERS Safety Report 7983913-3 (Version None)
Quarter: 2011Q4

REPORT INFORMATION
  Report Type: 
  Country: None (occurrence: None)
  Receive Date: 20111216
  Receipt Date: 20111212
  Transmission Date: 20120403
  Serious: No
  Sender: FDA-Public Use
  Company Number: US-BIOGENIDEC-2011BI047120

PATIENT
  Age: 50 Year
  Sex: Female

DRUGS (3)
  1. TYSABRI [Suspect]
     Indication: MULTIPLE SCLEROSIS
     Route: 042
     Dates: start: 20111208
  2. TYSABRI [Suspect]
     Route: 042
     Dates: start: 20100301, end: 20101129
  3. TYSABRI [Suspect]
     Route: 042
     Dates: start: 20071119, end: 20091214

REACTIONS (1)
  - MULTIPLE SCLEROSIS [None]
